FAERS Safety Report 4598866-8 (Version None)
Quarter: 2005Q1

REPORT INFORMATION
  Report Type: 
  Country: None (occurrence: None)
  Receive Date: 20050302
  Receipt Date: 20050302
  Transmission Date: 20050727
  Serious: Yes (Hospitalization)
  Sender: FDA-Public Use
  Company Number: None

PATIENT
  Age: 79 Year
  Sex: Female
  Weight: 83.0083 kg

DRUGS (4)
  1. DICLOFENAC [Suspect]
     Indication: ARTHRALGIA
  2. DICLOFENAC [Suspect]
     Indication: OSTEOARTHRITIS
  3. ASPIRIN [Concomitant]
  4. CLOPIDOGREL [Concomitant]

REACTIONS (3)
  - DUODENAL ULCER HAEMORRHAGE [None]
  - GASTRIC ULCER HAEMORRHAGE [None]
  - GASTROINTESTINAL HAEMORRHAGE [None]
